FAERS Safety Report 7543882-7 (Version None)
Quarter: 2011Q2

REPORT INFORMATION
  Report Type: 
  Country: None (occurrence: None)
  Receive Date: 20110613
  Receipt Date: 20110603
  Transmission Date: 20111010
  Serious: Yes (Life-Threatening)
  Sender: FDA-Public Use
  Company Number: JP-ROCHE-776548

PATIENT
  Age: 75 Year
  Sex: Female

DRUGS (17)
  1. ATELEC [Concomitant]
     Route: 048
  2. MERISLON [Concomitant]
     Route: 048
  3. ACTEMRA [Suspect]
     Indication: RHEUMATOID ARTHRITIS
     Dosage: DOSAGE IS UNCERTAIN
     Route: 041
     Dates: start: 20110204
  4. OMEPRAZON [Concomitant]
     Route: 048
  5. OPALMON [Concomitant]
     Route: 048
  6. LYRICA [Concomitant]
     Route: 048
  7. ISONIAZID [Concomitant]
     Route: 048
  8. VOLTAREN [Concomitant]
     Route: 048
  9. DIOVAN [Concomitant]
     Route: 048
  10. AZULFIDINE [Concomitant]
     Route: 048
  11. FOLIC ACID [Concomitant]
     Route: 048
  12. MEDROL [Concomitant]
     Route: 048
  13. RIMATIL [Concomitant]
     Route: 048
  14. HALCION [Concomitant]
     Route: 048
  15. LOXONIN [Concomitant]
     Route: 048
  16. METHOTREXATE [Concomitant]
     Route: 048
  17. ACTONEL [Concomitant]
     Route: 048

REACTIONS (1)
  - AORTIC DISSECTION [None]
